FAERS Safety Report 4626448-8 (Version None)
Quarter: 2005Q1

REPORT INFORMATION
  Report Type: 
  Country: None (occurrence: None)
  Receive Date: 20050330
  Receipt Date: 20050310
  Transmission Date: 20050727
  Serious: Yes (Other)
  Sender: FDA-Public Use
  Company Number: USA050392875

PATIENT
  Age: 70 Year
  Sex: Female

DRUGS (4)
  1. FORTEO [Suspect]
     Indication: OSTEOPOROSIS
     Dates: start: 20040212
  2. CALTRATE [Concomitant]
  3. VITAMINS [Concomitant]
  4. PREVACID [Concomitant]

REACTIONS (2)
  - BREAST CANCER FEMALE [None]
  - PHARMACEUTICAL PRODUCT COMPLAINT [None]
